FAERS Safety Report 8309410-3 (Version None)
Quarter: 2012Q2

REPORT INFORMATION
  Report Type: 
  Country: None (occurrence: None)
  Receive Date: 20120420
  Receipt Date: 20120406
  Transmission Date: 20120825
  Serious: Yes (Other)
  Sender: FDA-Public Use
  Company Number: MCA-N-12-024

PATIENT
  Age: 6 Year
  Sex: Female
  Weight: 33.1126 kg

DRUGS (3)
  1. DIVALPROEX EXTENDED-RELEASE [Suspect]
     Indication: EPILEPSY
     Dosage: 2500 MG; BID; PO; 500 MG; BID; PO;
     Route: 048
     Dates: start: 20120104, end: 20120405
  2. DIVALPROEX EXTENDED-RELEASE [Suspect]
     Indication: EPILEPSY
     Dosage: 2500 MG; BID; PO; 500 MG; BID; PO;
     Route: 048
     Dates: start: 20120406
  3. DIASTAT ACUDIAL [Concomitant]

REACTIONS (1)
  - PETIT MAL EPILEPSY [None]
